FAERS Safety Report 6249106-5 (Version None)
Quarter: 2009Q2

REPORT INFORMATION
  Report Type: 
  Country: None (occurrence: None)
  Receive Date: 20090624
  Receipt Date: 20090624
  Transmission Date: 20091009
  Serious: Yes (Other)
  Sender: FDA-Public Use
  Company Number: None

PATIENT
  Sex: Female
  Weight: 77.1115 kg

DRUGS (12)
  1. SIMVASTATIN [Suspect]
     Indication: HYPERCHOLESTEROLAEMIA
     Dosage: 20MG ONE TABLET DAILY PO
     Route: 048
     Dates: start: 20090110, end: 20090316
  2. BENADRYL [Concomitant]
  3. ASPIRIN [Concomitant]
  4. MULTIVITAMIN+IRON [Concomitant]
  5. METAMUCIL [Concomitant]
  6. ALBUTEROL [Concomitant]
  7. ALPRAZOLAM [Concomitant]
  8. FISH OIL [Concomitant]
  9. ARTHROTEC [Concomitant]
  10. VALTREX [Concomitant]
  11. LEVOTHYROXINE SODIUM [Concomitant]
  12. VITAMIN D [Concomitant]

REACTIONS (8)
  - AMNESIA [None]
  - ANTINUCLEAR ANTIBODY POSITIVE [None]
  - EYE SWELLING [None]
  - FATIGUE [None]
  - FEELING ABNORMAL [None]
  - MALAISE [None]
  - MEMORY IMPAIRMENT [None]
  - VISION BLURRED [None]
